FAERS Safety Report 5315011-1 (Version None)
Quarter: 2007Q2

REPORT INFORMATION
  Report Type: 
  Country: None (occurrence: None)
  Receive Date: 20070426
  Receipt Date: 20070416
  Transmission Date: 20071010
  Serious: Yes (Other)
  Sender: FDA-Public Use
  Company Number: 07-000853

PATIENT
  Age: 49 Year
  Sex: Female
  Weight: 88.4 kg

DRUGS (4)
  1. LOESTRIN 24 FE [Suspect]
     Indication: BACK PAIN
     Dosage: 20/1000UG, QD, ORAL
     Route: 048
     Dates: start: 20061001, end: 20070328
  2. LOESTRIN 24 FE [Suspect]
     Indication: DYSMENORRHOEA
     Dosage: 20/1000UG, QD, ORAL
     Route: 048
     Dates: start: 20061001, end: 20070328
  3. LOESTRIN 24 FE [Suspect]
     Indication: MENORRHAGIA
     Dosage: 20/1000UG, QD, ORAL
     Route: 048
     Dates: start: 20061001, end: 20070328
  4. LOESTRIN 24 FE [Suspect]
     Indication: UTERINE LEIOMYOMA
     Dosage: 20/1000UG, QD, ORAL
     Route: 048
     Dates: start: 20061001, end: 20070328

REACTIONS (12)
  - CARDIOVASCULAR DISORDER [None]
  - DIZZINESS [None]
  - DYSPNOEA [None]
  - GROIN PAIN [None]
  - METRORRHAGIA [None]
  - MYALGIA [None]
  - NAUSEA [None]
  - OEDEMA PERIPHERAL [None]
  - PAIN [None]
  - PAIN IN EXTREMITY [None]
  - POLLAKIURIA [None]
  - SKIN DISCOLOURATION [None]
